FAERS Safety Report 5762796-6 (Version None)
Quarter: 2008Q2

REPORT INFORMATION
  Report Type: 
  Country: None (occurrence: None)
  Receive Date: 20080528
  Receipt Date: 20080221
  Transmission Date: 20081010
  Serious: Yes (Other)
  Sender: FDA-Public Use
  Company Number: PHEH2008US02087

PATIENT

DRUGS (1)
  1. TASIGNA [Suspect]
     Dosage: 400 MG, BID, ORAL
     Route: 048
     Dates: start: 20071201, end: 20080201

REACTIONS (1)
  - PLEURAL EFFUSION [None]
